FAERS Safety Report 4305944-7 (Version None)
Quarter: 2004Q1

REPORT INFORMATION
  Report Type: 
  Country: None (occurrence: None)
  Receive Date: 20040225
  Receipt Date: 20040210
  Transmission Date: 20041129
  Serious: Yes (Hospitalization)
  Sender: FDA-Public Use
  Company Number: 2004AP00774

PATIENT
  Age: 73 Year
  Sex: Female

DRUGS (13)
  1. IRESSA [Suspect]
     Indication: ADENOCARCINOMA
     Dosage: 250 MG DAILY PO
     Route: 048
     Dates: start: 20031113, end: 20031119
  2. IRESSA [Suspect]
     Indication: NON-SMALL CELL LUNG CANCER
     Dosage: 250 MG DAILY PO
     Route: 048
     Dates: start: 20031113, end: 20031119
  3. MS CONTIN [Suspect]
     Indication: CANCER PAIN
     Dosage: 150 MG DAILY PO
     Route: 048
     Dates: start: 20031113, end: 20031119
  4. RENIVACE [Suspect]
     Indication: HYPERTENSION
     Dosage: 5 MG DAILY PO
     Route: 048
     Dates: start: 20031113, end: 20031119
  5. SELBEX [Suspect]
     Indication: PROPHYLAXIS AGAINST GASTROINTESTINAL ULCER
     Dosage: 1 G DAILY PO
     Route: 048
     Dates: start: 20031113, end: 20031119
  6. CODEINE PHOSPHATE [Suspect]
     Indication: NON-SMALL CELL LUNG CANCER
     Dosage: 60 MG DAILY PO
     Route: 048
     Dates: start: 20031113, end: 20031119
  7. LENDORM [Suspect]
     Indication: INSOMNIA
     Dosage: 1 DF DAILY PO
     Route: 048
     Dates: start: 20031113, end: 20031119
  8. LOXONIN [Suspect]
     Indication: CANCER PAIN
     Dosage: 180 MG DAILY PO
     Route: 048
     Dates: start: 20031113, end: 20031119
  9. TAGAMET [Suspect]
     Indication: PROPHYLAXIS AGAINST GASTROINTESTINAL ULCER
     Dosage: 2 DF DAILY PO
     Route: 048
     Dates: start: 20031113, end: 20031119
  10. NAUZELIN [Suspect]
     Indication: NAUSEA
     Dosage: 3 DF DAILY PO
     Route: 048
     Dates: start: 20031113, end: 20031119
  11. MEXITIL [Suspect]
     Indication: CANCER PAIN
     Dosage: 3 DF DAILY PO
     Route: 048
     Dates: start: 20031113, end: 20031119
  12. TAXOTERE [Concomitant]
  13. RADIOTHERAPY [Concomitant]

REACTIONS (6)
  - DEHYDRATION [None]
  - DEPRESSED LEVEL OF CONSCIOUSNESS [None]
  - DIARRHOEA [None]
  - PNEUMONIA ASPIRATION [None]
  - PYREXIA [None]
  - RENAL FAILURE [None]
